FAERS Safety Report 22656852 (Version 1)
Quarter: 2023Q2

REPORT INFORMATION
  Report Type: Spontaneous
  Country: US (occurrence: US)
  Receive Date: 20230630
  Receipt Date: 20230630
  Transmission Date: 20230721
  Serious: No
  Sender: FDA-Public Use
  Company Number: US-ABBVIE-5309972

PATIENT
  Age: 81 Year
  Sex: Female
  Weight: 67.1 kg

DRUGS (1)
  1. VENCLEXTA [Suspect]
     Active Substance: VENETOCLAX
     Indication: Acute myeloid leukaemia
     Dosage: FORM STRENGTH: 100MG?DURATION TEXT: DAILY FOR 5 DAYS EVERY 28 DAYS
     Route: 048

REACTIONS (1)
  - Investigation abnormal [Unknown]
